FAERS Safety Report 9613092 (Version 1)
Quarter: 2013Q4

REPORT INFORMATION
  Report Type: Spontaneous
  Country: US (occurrence: US)
  Receive Date: 20131010
  Receipt Date: 20131010
  Transmission Date: 20140711
  Serious: Yes (Hospitalization, Other)
  Sender: FDA-Public Use
  Company Number: US-PFIZER INC-2013285970

PATIENT
  Age: 55 Year
  Sex: Male

DRUGS (6)
  1. LIPITOR [Suspect]
     Dosage: UNK
  2. NITROSTAT [Suspect]
     Dosage: 0.4 MG, AS NEEDED
  3. HALFPRIN [Concomitant]
     Dosage: UNK
  4. METOPROLOL [Concomitant]
     Dosage: UNK
  5. ALTACE [Concomitant]
     Dosage: UNK
  6. EFFIENT [Concomitant]
     Dosage: UNK

REACTIONS (7)
  - Acute myocardial infarction [Unknown]
  - Dyspnoea [Unknown]
  - Dyspepsia [Unknown]
  - Chest pain [Recovered/Resolved]
  - Angina unstable [Not Recovered/Not Resolved]
  - Hypertension [Unknown]
  - Depression [Unknown]
